FAERS Safety Report 7234101-X (Version None)
Quarter: 2011Q1

REPORT INFORMATION
  Report Type: 
  Country: None (occurrence: None)
  Receive Date: 20110119
  Receipt Date: 20110112
  Transmission Date: 20110831
  Serious: Yes (Other)
  Sender: FDA-Public Use
  Company Number: US-US-EMD SERONO, INC.-7025112

PATIENT
  Sex: Female
  Weight: 94 kg

DRUGS (14)
  1. GABAPENTIN [Concomitant]
     Indication: NEURALGIA
  2. ZINC [Concomitant]
  3. CRANBERRY EXTRACT [Concomitant]
  4. RITALIN [Concomitant]
  5. NASONEX [Concomitant]
  6. ADVAIR [Concomitant]
  7. ASTELIN [Concomitant]
  8. XANAX [Concomitant]
  9. MULTI-VITAMIN [Concomitant]
  10. REBIF [Suspect]
     Indication: MULTIPLE SCLEROSIS
     Route: 058
     Dates: start: 20100812, end: 20101129
  11. CYMBALTA [Concomitant]
     Indication: NEURALGIA
  12. VITAMIN B COMPLEX CAP [Concomitant]
  13. COPPER [Concomitant]
  14. MEGA-D [Concomitant]

REACTIONS (16)
  - DEPRESSION [None]
  - EMOTIONAL DISORDER [None]
  - MUSCULAR WEAKNESS [None]
  - HEADACHE [None]
  - INJECTION SITE ERYTHEMA [None]
  - SUICIDAL IDEATION [None]
  - SENSORY DISTURBANCE [None]
  - INJECTION SITE PAIN [None]
  - FATIGUE [None]
  - PAIN [None]
  - VIOLENCE-RELATED SYMPTOM [None]
  - ANXIETY [None]
  - COGNITIVE DISORDER [None]
  - BAND SENSATION [None]
  - BALANCE DISORDER [None]
  - HYPOAESTHESIA [None]
